FAERS Safety Report 9330907 (Version 1)
Quarter: 2013Q2

REPORT INFORMATION
  Report Type: Spontaneous
  Country: US (occurrence: None)
  Receive Date: 20130531
  Receipt Date: 20130531
  Transmission Date: 20140414
  Serious: No
  Sender: FDA-Public Use
  Company Number: NPIL/ISO/H/2013/49

PATIENT
  Age: 30 Year
  Sex: Male

DRUGS (5)
  1. ISOFLURANE [Suspect]
  2. PROPOFOL [Concomitant]
  3. MIDAZOLAM [Concomitant]
  4. NALOXONE [Concomitant]
  5. NALTREXONE [Concomitant]

REACTIONS (4)
  - Respiratory distress [None]
  - Pulmonary oedema [None]
  - Pneumomediastinum [None]
  - Mental status changes [None]
